FAERS Safety Report 10409664 (Version 1)
Quarter: 2014Q2

REPORT INFORMATION
  Report Type: Spontaneous
  Country: US (occurrence: None)
  Receive Date: 20140604
  Receipt Date: 20140604
  Transmission Date: 20141212
  Serious: No
  Sender: FDA-Public Use
  Company Number: 163-POMAL-14051052

PATIENT
  Age: 64 Year
  Sex: Male
  Weight: 66.2 kg

DRUGS (5)
  1. POMALYST (POMALIDOMDIE) (4 MILLIGRAM, CAPSULES) [Suspect]
     Indication: PLASMA CELL MYELOMA
     Dosage: 21 IN 28D
     Route: 048
     Dates: start: 20131003
  2. DEXAMETHASONE (DEXAMETHASONE) [Concomitant]
  3. ASPIRIN (ACETYOLSALICYLIC ACID) [Concomitant]
  4. CALCIUIM (CALCIUIM) [Concomitant]
  5. BIAXIN (CLARITHROMYCIN) [Concomitant]

REACTIONS (1)
  - Body height decreased [None]
